FAERS Safety Report 4181839 (Version 2)
Quarter: 2012Q4

REPORT INFORMATION
  Report Type: 
  Country: US (occurrence: US)
  Receive Date: 20040723
  Receipt Date: 20121120
  Transmission Date: 20130627
  Serious: Yes (Hospitalization, Other)
  Sender: FDA-Public Use
  Company Number: US-JNJFOC-20040600812

PATIENT
  Age: 48 Year
  Sex: Male

DRUGS (2)
  1. MOTRIN IB [Suspect]
     Route: 048
  2. MOTRIN IB [Suspect]
     Indication: PYREXIA
     Dosage: 1200-1600 mg, PO
     Route: 048
     Dates: start: 20010308, end: 20010310

REACTIONS (4)
  - Abdominal discomfort [Recovered/Resolved]
  - Abscess intestinal [Recovered/Resolved]
  - Eating disorder [Recovered/Resolved]
  - Large intestine perforation [Recovered/Resolved]
